FAERS Safety Report 6464268-2 (Version None)
Quarter: 2009Q4

REPORT INFORMATION
  Report Type: 
  Country: None (occurrence: None)
  Receive Date: 20091201
  Receipt Date: 20091124
  Transmission Date: 20100525
  Serious: Yes (Hospitalization)
  Sender: FDA-Public Use
  Company Number: GXKR2009ES12754

PATIENT
  Age: 13 Year
  Sex: Male

DRUGS (2)
  1. SALBUTAMOL (NGX) [Suspect]
     Indication: ASTHMA
     Dosage: 15 MG/H, FOR THE FIRST HOUR
  2. SALBUTAMOL (NGX) [Suspect]
     Dosage: 5 MG/H, UNK

REACTIONS (1)
  - LACTIC ACIDOSIS [None]
